FAERS Safety Report 5431529-5 (Version None)
Quarter: 2007Q3

REPORT INFORMATION
  Report Type: 
  Country: None (occurrence: None)
  Receive Date: 20070830
  Receipt Date: 20070823
  Transmission Date: 20080115
  Serious: Yes (Other)
  Sender: FDA-Public Use
  Company Number: US-BAYER-200710374BWH

PATIENT
  Sex: Male
  Weight: 66 kg

DRUGS (11)
  1. NEXAVAR [Suspect]
     Indication: HEPATIC NEOPLASM MALIGNANT
     Dosage: TOTAL DAILY DOSE: 800 MG  UNIT DOSE: 200 MG
     Route: 048
     Dates: start: 20061207
  2. NEXAVAR [Suspect]
     Dosage: TOTAL DAILY DOSE: 400 MG  UNIT DOSE: 200 MG
     Route: 048
     Dates: start: 20061212, end: 20070207
  3. MORPHINE [Concomitant]
  4. DILAUDID [Concomitant]
     Route: 048
  5. HYZAAR [Concomitant]
  6. METFORMIN HCL [Concomitant]
  7. GLUCOPHAGE [Concomitant]
  8. LEXAPRO [Concomitant]
  9. ZOFRAN [Concomitant]
  10. MS CONTIN [Concomitant]
  11. LORTAB [Concomitant]

REACTIONS (8)
  - ASTHENIA [None]
  - DEHYDRATION [None]
  - DRY SKIN [None]
  - GINGIVAL BLEEDING [None]
  - LETHARGY [None]
  - NAUSEA [None]
  - PLATELET COUNT ABNORMAL [None]
  - VOMITING [None]
